FAERS Safety Report 6370768-6 (Version None)
Quarter: 2009Q3

REPORT INFORMATION
  Report Type: 
  Country: None (occurrence: None)
  Receive Date: 20090923
  Receipt Date: 20070427
  Transmission Date: 20100115
  Serious: Yes (Hospitalization)
  Sender: FDA-Public Use
  Company Number: US-ASTRAZENECA-2006UW24758

PATIENT
  Age: 19019 Day
  Sex: Male
  Weight: 95.3 kg

DRUGS (16)
  1. SEROQUEL [Suspect]
     Indication: MENTAL DISORDER
     Route: 048
     Dates: start: 20000101, end: 20060701
  2. SEROQUEL [Suspect]
     Indication: INSOMNIA
     Route: 048
     Dates: start: 20000101, end: 20060701
  3. SEROQUEL [Suspect]
     Dosage: 50MG-600 MG
     Route: 048
     Dates: start: 20000101
  4. SEROQUEL [Suspect]
     Dosage: 50MG-600 MG
     Route: 048
     Dates: start: 20000101
  5. NEXIUM [Concomitant]
  6. GLUCOPHAGE [Concomitant]
  7. LOPRESSOR [Concomitant]
  8. KLONOPIN [Concomitant]
  9. CELEXA [Concomitant]
  10. ZOCOR [Concomitant]
  11. DESYREL [Concomitant]
  12. WELLBUTRIN [Concomitant]
  13. COUMADIN [Concomitant]
  14. REMERON [Concomitant]
  15. VICODIN [Concomitant]
  16. AMBIEN [Concomitant]

REACTIONS (2)
  - DIABETES MELLITUS [None]
  - HYPOGLYCAEMIA [None]
